FAERS Safety Report 4283657-8 (Version None)
Quarter: 2004Q1

REPORT INFORMATION
  Report Type: 
  Country: None (occurrence: None)
  Receive Date: 20040202
  Receipt Date: 20040106
  Transmission Date: 20041129
  Serious: Yes (Other)
  Sender: FDA-Public Use
  Company Number: US-ROCHE-355371

PATIENT
  Age: 16 Year
  Sex: Male
  Weight: 68 kg

DRUGS (3)
  1. ACCUTANE [Suspect]
     Indication: ACNE
     Route: 048
     Dates: start: 20031112, end: 20031215
  2. AMNESTEEM [Suspect]
     Indication: ACNE
     Route: 048
     Dates: start: 20031215, end: 20040105
  3. AMPICILLIN [Concomitant]
     Indication: ACNE
     Route: 048
     Dates: start: 20031112

REACTIONS (2)
  - INFLUENZA [None]
  - VOMITING [None]
